FAERS Safety Report 17550983 (Version 1)
Quarter: 2020Q1

REPORT INFORMATION
  Report Type: Spontaneous
  Country: PL (occurrence: PL)
  Receive Date: 20200317
  Receipt Date: 20200317
  Transmission Date: 20200409
  Serious: Yes (Other)
  Sender: FDA-Public Use
  Company Number: PL-ACTELION-A-CH2020-201650

PATIENT
  Age: 52 Year
  Sex: Female

DRUGS (3)
  1. SILDENAFIL. [Concomitant]
     Active Substance: SILDENAFIL
  2. MACITENTAN [Suspect]
     Active Substance: MACITENTAN
     Indication: PULMONARY ARTERIAL HYPERTENSION
     Route: 048
  3. TREPROSTINIL. [Concomitant]
     Active Substance: TREPROSTINIL

REACTIONS (4)
  - Concomitant disease aggravated [Unknown]
  - Pulmonary artery dilatation [Unknown]
  - Vascular dissection [Unknown]
  - Chest pain [Unknown]

NARRATIVE: CASE EVENT DATE: 201310
